FAERS Safety Report 15483447 (Version 5)
Quarter: 2018Q4

REPORT INFORMATION
  Report Type: Spontaneous
  Country: CA (occurrence: CA)
  Receive Date: 20181010
  Receipt Date: 20181210
  Transmission Date: 20190205
  Serious: Yes (Other)
  Sender: FDA-Public Use
  Company Number: CA-CELLTRION INC.-2018CA020705

PATIENT

DRUGS (7)
  1. INFLECTRA [Suspect]
     Active Substance: INFLIXIMAB-DYYB
     Indication: PSORIATIC ARTHROPATHY
     Dosage: 3 MG/KG (438MG),(EVERY 0, 2, 6 WEEKS AND MAINTENANCE EVERY 8 WEEKS);
     Route: 042
  2. INFLECTRA [Suspect]
     Active Substance: INFLIXIMAB-DYYB
     Dosage: 438 MG, (Q0, 2, 6 WEEKS, THEN EVERY 8 WEEKS)
     Route: 042
     Dates: start: 20180807
  3. SULFASALAZINE. [Concomitant]
     Active Substance: SULFASALAZINE
     Dosage: UNK
  4. METHOTREXATE. [Concomitant]
     Active Substance: METHOTREXATE
     Dosage: UNK
  5. INFLECTRA [Suspect]
     Active Substance: INFLIXIMAB-DYYB
     Dosage: 400 MG, EVERY 6 WEEKS, THEN EVERY 8 WEEKS)
     Route: 042
     Dates: start: 20181127
  6. INFLECTRA [Suspect]
     Active Substance: INFLIXIMAB-DYYB
     Dosage: 438MG, (EVERY 0, 2, 6 WEEKS AND MAINTENANCE EVERY 8 WEEKS);
     Route: 042
     Dates: start: 20180625
  7. INFLECTRA [Suspect]
     Active Substance: INFLIXIMAB-DYYB
     Dosage: 500 MG, UNK;
     Route: 042
     Dates: start: 20180709

REACTIONS (6)
  - Nasal congestion [Not Recovered/Not Resolved]
  - Product use issue [Unknown]
  - Off label use [Unknown]
  - Nasopharyngitis [Not Recovered/Not Resolved]
  - Diabetes mellitus [Unknown]
  - Blood pressure fluctuation [Unknown]

NARRATIVE: CASE EVENT DATE: 20180709
